FAERS Safety Report 9466970 (Version 1)
Quarter: 2013Q3

REPORT INFORMATION
  Report Type: Spontaneous
  Country: US (occurrence: US)
  Receive Date: 20130820
  Receipt Date: 20130820
  Transmission Date: 20140515
  Serious: Yes (Death)
  Sender: FDA-Public Use
  Company Number: US-ROCHE-1263610

PATIENT
  Age: 77 Year
  Sex: Female

DRUGS (7)
  1. DIAZEPAM [Concomitant]
  2. RELAFEN [Concomitant]
  3. XELODA [Suspect]
     Indication: PRODUCT USED FOR UNKNOWN INDICATION
     Dosage: 7 DAYS ON THEN 7 DAYS OFF
     Route: 048
  4. DILTIAZEM [Concomitant]
  5. PREDNISONE [Concomitant]
  6. WARFARIN [Concomitant]
  7. FUROSEMIDE [Concomitant]

REACTIONS (1)
  - Death [Fatal]
